FAERS Safety Report 4716892-2 (Version None)
Quarter: 2005Q3

REPORT INFORMATION
  Report Type: 
  Country: None (occurrence: None)
  Receive Date: 20050714
  Receipt Date: 20050708
  Transmission Date: 20060218
  Serious: Yes (Hospitalization)
  Sender: FDA-Public Use
  Company Number: A044-002-005669

PATIENT
  Age: 63 Year
  Sex: Male
  Weight: 70 kg

DRUGS (3)
  1. ARICEPT [Suspect]
     Indication: DEMENTIA ALZHEIMER'S TYPE
     Dosage: 5 MG, 1 IN 1 D, ORAL
     Route: 048
     Dates: start: 20050308, end: 20050325
  2. MICARDIS [Concomitant]
  3. CARMEN (LERCANIDIPINE) [Concomitant]

REACTIONS (4)
  - AGGRESSION [None]
  - GENERAL PHYSICAL CONDITION ABNORMAL [None]
  - JEALOUS DELUSION [None]
  - RESTLESSNESS [None]
